FAERS Safety Report 8965903 (Version 1)
Quarter: 2012Q4

REPORT INFORMATION
  Report Type: Spontaneous
  Country: US (occurrence: None)
  Receive Date: 20121206
  Receipt Date: 20121206
  Transmission Date: 20130627
  Serious: Yes (Life-Threatening)
  Sender: FDA-Public Use
  Company Number: 100415-000096

PATIENT
  Age: 58 Year
  Sex: Female

DRUGS (3)
  1. SHEER COVER MINERAL FOUNDATION SPF 15 [Suspect]
     Dosage: Once daily dermal
     Route: 061
     Dates: start: 20100414
  2. SHEER COVER NOURISHING MOISTURIZER SPF 15 [Suspect]
     Dosage: Once daily dermal
     Route: 061
     Dates: start: 20100414
  3. EPIPEN [Concomitant]

REACTIONS (4)
  - Rash pruritic [None]
  - Rash erythematous [None]
  - Pharyngeal oedema [None]
  - Throat tightness [None]
